FAERS Safety Report 17114205 (Version 3)
Quarter: 2020Q3

REPORT INFORMATION
  Report Type: Spontaneous
  Country: US (occurrence: US)
  Receive Date: 20191205
  Receipt Date: 20200812
  Transmission Date: 20201102
  Serious: Yes (Other)
  Sender: FDA-Public Use
  Company Number: US-GILEAD-2019-0440268

PATIENT
  Sex: Male

DRUGS (1)
  1. TRUVADA [Suspect]
     Active Substance: EMTRICITABINE\TENOFOVIR DISOPROXIL FUMARATE
     Indication: HIV INFECTION
     Dosage: UNK
     Route: 048
     Dates: start: 20060910, end: 201112

REACTIONS (4)
  - Renal failure [Unknown]
  - Renal impairment [Not Recovered/Not Resolved]
  - Chronic kidney disease [Unknown]
  - Osteoporosis [Not Recovered/Not Resolved]

NARRATIVE: CASE EVENT DATE: 2017
